FAERS Safety Report 8519124 (Version 14)
Quarter: 2014Q1

REPORT INFORMATION
  Report Type: Report from Study
  Country: CA (occurrence: CA)
  Receive Date: 20120418
  Receipt Date: 20140121
  Transmission Date: 20141002
  Serious: Yes (Death, Other)
  Sender: FDA-Public Use
  Company Number: PHHY2011CA95806

PATIENT
  Age: 78 Year
  Sex: Male

DRUGS (4)
  1. SANDOSTATIN LAR [Suspect]
     Indication: CARCINOID SYNDROME
     Dosage: 30 MG, EVERY 4 WEEKS
     Route: 030
     Dates: start: 20110923
  2. SANDOSTATIN LAR [Suspect]
     Dosage: 30 MG, EVERY 4 WEEKS
     Route: 030
     Dates: end: 20131127
  3. AFINITOR [Suspect]
     Indication: CARCINOID SYNDROME
     Dosage: 10 MG, QD
     Route: 048
  4. CHEMOTHERAPEUTICS [Concomitant]
     Dosage: UNK UKN, UNK

REACTIONS (18)
  - Death [Fatal]
  - Terminal state [Unknown]
  - General physical health deterioration [Unknown]
  - Injection site haemorrhage [Unknown]
  - Muscle spasms [Unknown]
  - Blood sodium increased [Unknown]
  - Oedema [Unknown]
  - Body temperature decreased [Unknown]
  - Wrong technique in drug usage process [Unknown]
  - Blood pressure increased [Unknown]
  - Cough [Unknown]
  - Weight decreased [Unknown]
  - Oedema peripheral [Recovering/Resolving]
  - Haemoglobin decreased [Unknown]
  - Platelet count decreased [Unknown]
  - Flatulence [Unknown]
  - Diarrhoea [Unknown]
  - Dyspnoea [Unknown]
